FAERS Safety Report 8729727 (Version 2)
Quarter: 2015Q2

REPORT INFORMATION
  Report Type: Report from Study
  Country: US (occurrence: US)
  Receive Date: 20120817
  Receipt Date: 20150629
  Transmission Date: 20150821
  Serious: Yes (Hospitalization)
  Sender: FDA-Public Use
  Company Number: US-ROCHE-1100665

PATIENT
  Age: 44 Year
  Sex: Male

DRUGS (6)
  1. PROCARDIA (UNITED STATES) [Concomitant]
     Route: 065
  2. TAGAMET [Concomitant]
     Active Substance: CIMETIDINE
     Route: 065
  3. ACTIVASE [Suspect]
     Active Substance: ALTEPLASE
     Indication: ACUTE MYOCARDIAL INFARCTION
     Dosage: 11 CC IN 100 CC D5W
     Route: 065
  4. DOPAMINE [Concomitant]
     Active Substance: DOPAMINE\DOPAMINE HYDROCHLORIDE
     Dosage: 400 MG PER 250 CC D5W
     Route: 065
  5. LOPRESSOR [Concomitant]
     Active Substance: METOPROLOL TARTRATE
     Route: 065
  6. DOPAMINE [Concomitant]
     Active Substance: DOPAMINE\DOPAMINE HYDROCHLORIDE
     Route: 065

REACTIONS (6)
  - Nausea [Unknown]
  - Chest pain [Unknown]
  - Pain in jaw [Unknown]
  - Vomiting [Unknown]
  - Lethargy [Unknown]
  - Extrasystoles [Unknown]
